FAERS Safety Report 11790270 (Version 2)
Quarter: 2015Q4

REPORT INFORMATION
  Report Type: Spontaneous
  Country: PT (occurrence: PT)
  Receive Date: 20151201
  Receipt Date: 20151203
  Transmission Date: 20160305
  Serious: Yes (Hospitalization)
  Sender: FDA-Public Use
  Company Number: PT-BIOGENIDEC-2015BI152643

PATIENT
  Age: 47 Year
  Sex: Male

DRUGS (3)
  1. FAMPYRA [Concomitant]
     Active Substance: DALFAMPRIDINE
     Dates: start: 200412
  2. TYSABRI [Suspect]
     Active Substance: NATALIZUMAB
     Indication: PRODUCT USED FOR UNKNOWN INDICATION
     Route: 042
     Dates: start: 201209, end: 20150916
  3. MIRTAZAPIN [Concomitant]
     Active Substance: MIRTAZAPINE
     Route: 048
     Dates: start: 200701

REACTIONS (5)
  - Pneumothorax [Unknown]
  - Multiple sclerosis relapse [Unknown]
  - Fall [Unknown]
  - Progressive multifocal leukoencephalopathy [Not Recovered/Not Resolved]
  - Rib fracture [Unknown]

NARRATIVE: CASE EVENT DATE: 20150925
